FAERS Safety Report 20538349 (Version 1)
Quarter: 2022Q1

REPORT INFORMATION
  Report Type: Spontaneous
  Country: US (occurrence: None)
  Receive Date: 20220301
  Receipt Date: 20220301
  Transmission Date: 20220424
  Serious: Yes (Other)
  Sender: FDA-Public Use
  Company Number: None

PATIENT
  Age: 74 Year
  Sex: Female
  Weight: 56.25 kg

DRUGS (1)
  1. EUTHYROX [Suspect]
     Active Substance: LEVOTHYROXINE SODIUM
     Indication: Hypothyroidism
     Dosage: OTHER QUANTITY : 30 TABLET(S);?
     Route: 048
     Dates: start: 20211125, end: 20211216

REACTIONS (5)
  - Dizziness [None]
  - Headache [None]
  - Balance disorder [None]
  - Therapy cessation [None]
  - Product substitution issue [None]

NARRATIVE: CASE EVENT DATE: 20211215
